FAERS Safety Report 23348194 (Version 2)
Quarter: 2024Q1

REPORT INFORMATION
  Report Type: Spontaneous
  Country: JP (occurrence: JP)
  Receive Date: 20231228
  Receipt Date: 20240229
  Transmission Date: 20240409
  Serious: Yes (Hospitalization)
  Sender: FDA-Public Use
  Company Number: JP-Eisai-202311713_LEN-RCC_P_1

PATIENT
  Age: 7 Decade

DRUGS (4)
  1. LENVIMA [Suspect]
     Active Substance: LENVATINIB
     Indication: Renal cell carcinoma
     Dosage: TWO CYCLES
     Route: 048
     Dates: start: 202311, end: 202312
  2. LENVIMA [Suspect]
     Active Substance: LENVATINIB
     Dosage: TWO CYCLES
     Route: 048
     Dates: start: 20240118
  3. KEYTRUDA [Concomitant]
     Active Substance: PEMBROLIZUMAB
     Indication: Renal cell carcinoma
     Dosage: TWO CYCLES
     Route: 041
     Dates: start: 202311, end: 202312
  4. KEYTRUDA [Concomitant]
     Active Substance: PEMBROLIZUMAB
     Dosage: TWO CYCLES
     Route: 041
     Dates: start: 20240125

REACTIONS (3)
  - Infectious pleural effusion [Recovered/Resolved]
  - Malaise [Recovered/Resolved]
  - Thirst [Recovered/Resolved]

NARRATIVE: CASE EVENT DATE: 20231201
